FAERS Safety Report 7264693-6 (Version None)
Quarter: 2011Q1

REPORT INFORMATION
  Report Type: 
  Country: None (occurrence: None)
  Receive Date: 20110131
  Receipt Date: 20110120
  Transmission Date: 20110831
  Serious: Yes (Hospitalization)
  Sender: FDA-Public Use
  Company Number: FR-JNJFOC-20110105881

PATIENT
  Age: 57 Year
  Sex: Male

DRUGS (4)
  1. ZOMIG [Concomitant]
  2. REMICADE [Suspect]
     Route: 042
  3. REMICADE [Suspect]
     Indication: ANKYLOSING SPONDYLITIS
     Route: 042
  4. METFORMIN HCL [Concomitant]

REACTIONS (1)
  - PROSTATE CANCER [None]
